FAERS Safety Report 16338160 (Version 1)
Quarter: 2019Q2

REPORT INFORMATION
  Report Type: Report from Study
  Country: US (occurrence: US)
  Receive Date: 20190521
  Receipt Date: 20190521
  Transmission Date: 20190711
  Serious: Yes (Other)
  Sender: FDA-Public Use
  Company Number: US-ROCHE-2317101

PATIENT
  Age: 57 Year
  Sex: Female
  Weight: 93.07 kg

DRUGS (2)
  1. OCREVUS [Suspect]
     Active Substance: OCRELIZUMAB
     Indication: RELAPSING MULTIPLE SCLEROSIS
     Dosage: FULL DOSE ;ONGOING: UNKNOWN
     Route: 042
     Dates: start: 201812
  2. OCREVUS [Suspect]
     Active Substance: OCRELIZUMAB
     Indication: SECONDARY PROGRESSIVE MULTIPLE SCLEROSIS
     Dosage: HALF DOSE ;ONGOING: NO
     Route: 042
     Dates: start: 201806

REACTIONS (4)
  - Cystitis [Recovered/Resolved]
  - Pain [Not Recovered/Not Resolved]
  - Bacterial vaginosis [Not Recovered/Not Resolved]
  - Spinal stenosis [Not Recovered/Not Resolved]

NARRATIVE: CASE EVENT DATE: 201806
